FAERS Safety Report 12038162 (Version 1)
Quarter: 2016Q1

REPORT INFORMATION
  Report Type: Spontaneous
  Country: US (occurrence: None)
  Receive Date: 20160205
  Receipt Date: 20160205
  Transmission Date: 20160526
  Serious: Yes (Hospitalization, Other)
  Sender: FDA-Public Use
  Company Number: None

PATIENT
  Age: 70 Year
  Sex: Male
  Weight: 69.2 kg

DRUGS (1)
  1. PIRFENIDONE 267 MG [Suspect]
     Active Substance: PIRFENIDONE
     Indication: IDIOPATHIC PULMONARY FIBROSIS
     Dates: start: 20151202, end: 20160119

REACTIONS (2)
  - Hemiparesis [None]
  - Ischaemic neuropathy [None]

NARRATIVE: CASE EVENT DATE: 20160119
